FAERS Safety Report 12123958 (Version 1)
Quarter: 2016Q1

REPORT INFORMATION
  Report Type: Spontaneous
  Country: US (occurrence: US)
  Receive Date: 20160228
  Receipt Date: 20160228
  Transmission Date: 20160526
  Serious: Yes (Other)
  Sender: FDA-Public Use
  Company Number: US-BRISTOL-MYERS SQUIBB COMPANY-BMS-2016-013514

PATIENT
  Sex: Male
  Weight: 82.1 kg

DRUGS (1)
  1. OPDIVO [Suspect]
     Active Substance: NIVOLUMAB
     Indication: RENAL CELL CARCINOMA
     Dosage: UNK
     Route: 065
     Dates: start: 201507

REACTIONS (3)
  - Ascites [Unknown]
  - Blood thyroid stimulating hormone increased [Unknown]
  - Blood creatinine increased [Unknown]
